FAERS Safety Report 5075521-1 (Version None)
Quarter: 2006Q3

REPORT INFORMATION
  Report Type: 
  Country: None (occurrence: None)
  Receive Date: 20060803
  Receipt Date: 20060803
  Transmission Date: 20061208
  Serious: Yes (Hospitalization)
  Sender: FDA-Public Use
  Company Number: None

PATIENT
  Age: 52 Year
  Sex: Male
  Weight: 89 kg

DRUGS (2)
  1. CETUXIMAB 400MG/M2 [Suspect]
     Indication: NON-SMALL CELL LUNG CANCER
     Dosage: 400MG/M2 IV
     Route: 042
     Dates: start: 20060717
  2. VINFLUNINE [Suspect]
     Indication: NON-SMALL CELL LUNG CANCER
     Dosage: 350MG/M2 IV
     Route: 042
     Dates: start: 20060717

REACTIONS (20)
  - BREATH SOUNDS ABNORMAL [None]
  - CHEST PAIN [None]
  - CHILLS [None]
  - COUGH [None]
  - CREPITATIONS [None]
  - HAEMATOCRIT DECREASED [None]
  - HAEMOGLOBIN DECREASED [None]
  - HAEMOPTYSIS [None]
  - INFLUENZA LIKE ILLNESS [None]
  - METASTASES TO SPINE [None]
  - MYOCARDIAL INFARCTION [None]
  - ORAL INTAKE REDUCED [None]
  - PAIN [None]
  - PHARYNGOLARYNGEAL PAIN [None]
  - PYREXIA [None]
  - RASH [None]
  - RASH ERYTHEMATOUS [None]
  - TACHYCARDIA [None]
  - TREMOR [None]
  - WHEEZING [None]
